FAERS Safety Report 13890128 (Version 1)
Quarter: 2017Q3

REPORT INFORMATION
  Report Type: Report from Study
  Country: BR (occurrence: BR)
  Receive Date: 20170822
  Receipt Date: 20170822
  Transmission Date: 20171127
  Serious: Yes (Hospitalization)
  Sender: FDA-Public Use
  Company Number: BR-UCBSA-2017032287

PATIENT
  Age: 7 Year
  Sex: Female

DRUGS (7)
  1. FRISIUM [Concomitant]
     Active Substance: CLOBAZAM
     Indication: PRODUCT USED FOR UNKNOWN INDICATION
  2. LEVETIRACETAM. [Suspect]
     Active Substance: LEVETIRACETAM
     Indication: EPILEPSY
     Dosage: UNK
     Route: 048
     Dates: end: 2008
  3. LEVETIRACETAM. [Suspect]
     Active Substance: LEVETIRACETAM
     Dosage: 8 ML, 3X/DAY (TID)
     Route: 048
     Dates: start: 2017
  4. LEVETIRACETAM. [Suspect]
     Active Substance: LEVETIRACETAM
     Dosage: AT BASELINE
     Route: 048
  5. LEVETIRACETAM. [Suspect]
     Active Substance: LEVETIRACETAM
     Dosage: 6 ML, 2X/DAY (BID)
     Route: 048
  6. PRIMIDONE. [Concomitant]
     Active Substance: PRIMIDONE
     Indication: PRODUCT USED FOR UNKNOWN INDICATION
  7. LEVETIRACETAM. [Suspect]
     Active Substance: LEVETIRACETAM
     Dosage: 6 ML, 3X/DAY (TID)
     Route: 048
     Dates: start: 201703, end: 2017

REACTIONS (6)
  - Drug ineffective [Unknown]
  - Seizure cluster [Not Recovered/Not Resolved]
  - Intentional product misuse [Unknown]
  - Drug level decreased [Unknown]
  - Joint dislocation [Unknown]
  - Nervous system disorder [Unknown]

NARRATIVE: CASE EVENT DATE: 201505
